FAERS Safety Report 23341266 (Version 2)
Quarter: 2024Q1

REPORT INFORMATION
  Report Type: Spontaneous
  Country: JP (occurrence: JP)
  Receive Date: 20231227
  Receipt Date: 20240103
  Transmission Date: 20240410
  Serious: Yes (Other)
  Sender: FDA-Public Use
  Company Number: JP-ROCHE-2445513

PATIENT
  Age: 67 Year
  Sex: Female

DRUGS (28)
  1. VALGANCICLOVIR [Suspect]
     Active Substance: VALGANCICLOVIR
     Indication: Cytomegalovirus infection
     Dosage: 450 MILLIGRAM?DAILY DOSE: 2 DOSAGE FORM
     Route: 048
     Dates: start: 20190312, end: 20190401
  2. AZATHIOPRINE [Suspect]
     Active Substance: AZATHIOPRINE
     Indication: Product used for unknown indication
     Dosage: DAILY DOSE: 50 MILLIGRAM
     Route: 048
     Dates: start: 20190515, end: 20190626
  3. AZATHIOPRINE [Suspect]
     Active Substance: AZATHIOPRINE
     Indication: Product used for unknown indication
     Route: 048
     Dates: start: 20190627, end: 20190709
  4. AZATHIOPRINE [Suspect]
     Active Substance: AZATHIOPRINE
     Indication: Product used for unknown indication
     Dosage: DAILY DOSE: 25 MILLIGRAM
     Route: 048
     Dates: start: 20190710, end: 20190724
  5. AZATHIOPRINE [Suspect]
     Active Substance: AZATHIOPRINE
     Indication: Product used for unknown indication
     Route: 048
     Dates: start: 20190725, end: 20190806
  6. AZATHIOPRINE [Suspect]
     Active Substance: AZATHIOPRINE
     Indication: Product used for unknown indication
     Dosage: DAILY DOSE: 25 MILLIGRAM
     Route: 048
     Dates: start: 20190807, end: 20190901
  7. AZATHIOPRINE [Suspect]
     Active Substance: AZATHIOPRINE
     Indication: Product used for unknown indication
     Route: 048
     Dates: start: 20190902, end: 20190917
  8. AZATHIOPRINE [Suspect]
     Active Substance: AZATHIOPRINE
     Indication: Product used for unknown indication
     Dosage: DAILY DOSE: 25 MILLIGRAM
     Route: 048
     Dates: start: 20190918, end: 20191016
  9. AZATHIOPRINE [Suspect]
     Active Substance: AZATHIOPRINE
     Indication: Product used for unknown indication
     Dosage: DAILY DOSE: 50 MILLIGRAM
     Route: 048
     Dates: start: 20191017, end: 20200205
  10. AZATHIOPRINE [Suspect]
     Active Substance: AZATHIOPRINE
     Indication: Product used for unknown indication
     Route: 048
     Dates: end: 20190625
  11. AZATHIOPRINE [Suspect]
     Active Substance: AZATHIOPRINE
     Indication: Product used for unknown indication
     Route: 048
     Dates: end: 20190907
  12. CYCLOPHOSPHAMIDE [Suspect]
     Active Substance: CYCLOPHOSPHAMIDE
     Indication: Product used for unknown indication
  13. ELDECALCITOL [Concomitant]
     Active Substance: ELDECALCITOL
     Route: 048
  14. CODEINE PHOSPHATE [Concomitant]
     Active Substance: CODEINE PHOSPHATE
     Route: 048
     Dates: start: 20190709
  15. CODEINE PHOSPHATE [Concomitant]
     Active Substance: CODEINE PHOSPHATE
     Dates: end: 20190211
  16. MAGNESIUM OXIDE [Concomitant]
     Active Substance: MAGNESIUM OXIDE
     Indication: Prophylaxis
     Route: 048
  17. SITAFLOXACIN [Concomitant]
     Active Substance: SITAFLOXACIN
     Dates: start: 20190129
  18. SITAFLOXACIN [Concomitant]
     Active Substance: SITAFLOXACIN
     Dates: end: 20190129
  19. PREDNISOLONE [Concomitant]
     Active Substance: PREDNISOLONE
  20. VIDARABINE [Concomitant]
     Active Substance: VIDARABINE
     Route: 061
     Dates: start: 20190131, end: 20190204
  21. LANSOPRAZOLE [Concomitant]
     Active Substance: LANSOPRAZOLE
     Route: 048
     Dates: start: 20190201
  22. SULFAMETHOXAZOLE\TRIMETHOPRIM [Concomitant]
     Active Substance: SULFAMETHOXAZOLE\TRIMETHOPRIM
     Indication: Prophylaxis
     Route: 048
     Dates: start: 20190206
  23. MESNA [Concomitant]
     Active Substance: MESNA
     Dates: start: 20190206, end: 20190206
  24. MESNA [Concomitant]
     Active Substance: MESNA
     Route: 042
     Dates: start: 20190206, end: 20190410
  25. FLUTICASONE FUROATE [Concomitant]
     Active Substance: FLUTICASONE FUROATE
     Route: 045
     Dates: start: 20190516
  26. LANSOPRAZOLE [Concomitant]
     Active Substance: LANSOPRAZOLE
     Route: 048
     Dates: start: 20190131
  27. LANSOPRAZOLE [Concomitant]
     Active Substance: LANSOPRAZOLE
     Dates: end: 20190131
  28. CARBOCYSTEINE [Concomitant]
     Active Substance: CARBOCYSTEINE
     Dates: start: 20190901, end: 20190907

REACTIONS (9)
  - Pneumonia bacterial [Recovered/Resolved]
  - Liver function test abnormal [Recovered/Resolved]
  - Amylase increased [Recovered/Resolved]
  - Pneumomediastinum [Recovered/Resolved]
  - Dental caries [Not Recovered/Not Resolved]
  - Hyperglycaemia [Recovered/Resolved]
  - Gastroenteritis viral [Recovered/Resolved]
  - Weight decreased [Not Recovered/Not Resolved]
  - Off label use [Recovered/Resolved]

NARRATIVE: CASE EVENT DATE: 20190312
